FAERS Safety Report 20209134 (Version 1)
Quarter: 2021Q4

REPORT INFORMATION
  Report Type: Spontaneous
  Country: US (occurrence: US)
  Receive Date: 20211220
  Receipt Date: 20211220
  Transmission Date: 20220303
  Serious: Yes (Other)
  Sender: FDA-Public Use
  Company Number: US-LUNDBECK-DKLU3042340

PATIENT
  Age: 1 Year
  Sex: Female

DRUGS (1)
  1. SABRIL [Suspect]
     Active Substance: VIGABATRIN
     Indication: Infantile spasms
     Route: 048
     Dates: start: 20210806

REACTIONS (5)
  - Seizure [Not Recovered/Not Resolved]
  - Insomnia [Unknown]
  - Headache [Unknown]
  - Feeling hot [Unknown]
  - Product dose omission issue [Unknown]

NARRATIVE: CASE EVENT DATE: 20211201
